FAERS Safety Report 8479827-5 (Version None)
Quarter: 2012Q2

REPORT INFORMATION
  Report Type: 
  Country: None (occurrence: None)
  Receive Date: 20120629
  Receipt Date: 20120619
  Transmission Date: 20120825
  Serious: Yes (Hospitalization, Other)
  Sender: FDA-Public Use
  Company Number: JP-VERTEX PHARMACEUTICALS INC.-AE-2012-003684

PATIENT
  Age: 66 Year
  Sex: Female

DRUGS (20)
  1. TELAVIC (TELAPREVIR) [Suspect]
     Route: 048
     Dates: end: 20120214
  2. RIBAVIRIN [Concomitant]
     Route: 048
     Dates: start: 20120227, end: 20120301
  3. VOLTAREN [Concomitant]
     Route: 054
     Dates: start: 20120124
  4. TELAVIC (TELAPREVIR) [Suspect]
     Indication: HEPATITIS C
     Route: 048
     Dates: start: 20120124, end: 20120212
  5. TELAVIC (TELAPREVIR) [Suspect]
     Route: 048
     Dates: start: 20120213, end: 20120301
  6. TELAVIC (TELAPREVIR) [Suspect]
     Route: 048
     Dates: start: 20120215, end: 20120219
  7. TELAVIC (TELAPREVIR) [Suspect]
     Route: 048
     Dates: start: 20120312
  8. TOUGHMAC E [Concomitant]
     Dates: start: 20120125
  9. URSO 250 [Concomitant]
     Route: 048
  10. PEGINTERFERON ALFA-2B [Concomitant]
     Route: 051
     Dates: start: 20120409
  11. RIBAVIRIN [Concomitant]
     Route: 048
     Dates: start: 20120312
  12. FUNGIZONE [Concomitant]
     Route: 048
     Dates: start: 20120214
  13. PEGINTERFERON ALFA-2B [Concomitant]
     Indication: HEPATITIS C
     Route: 051
     Dates: start: 20120124, end: 20120302
  14. SELBEX [Concomitant]
     Route: 048
     Dates: start: 20120125
  15. MOTILIUM [Concomitant]
     Route: 048
     Dates: start: 20120223
  16. PEGINTERFERON ALFA-2B [Concomitant]
     Route: 051
     Dates: start: 20120312, end: 20120408
  17. TELAVIC (TELAPREVIR) [Suspect]
     Route: 048
     Dates: start: 20120220, end: 20120301
  18. RIBAVIRIN [Concomitant]
     Indication: HEPATITIS C
     Route: 048
     Dates: start: 20120124, end: 20120219
  19. RIBAVIRIN [Concomitant]
     Route: 048
     Dates: start: 20120220, end: 20120226
  20. VOLTAREN-XR [Concomitant]
     Route: 048
     Dates: start: 20120125

REACTIONS (2)
  - DECREASED APPETITE [None]
  - ANAEMIA [None]
